FAERS Safety Report 25772347 (Version 1)
Quarter: 2025Q3

REPORT INFORMATION
  Report Type: Spontaneous
  Country: CN (occurrence: CN)
  Receive Date: 20250908
  Receipt Date: 20250908
  Transmission Date: 20251020
  Serious: Yes (Other)
  Sender: ROCHE
  Company Number: CN-BoehringerIngelheim-2025-BI-091884

PATIENT
  Age: 50 Year
  Sex: Male
  Weight: 63.0 kg

DRUGS (2)
  1. ALTEPLASE [Suspect]
     Active Substance: ALTEPLASE
     Indication: Cerebral infarction
     Route: 042
     Dates: start: 20250823, end: 20250823
  2. ALTEPLASE [Suspect]
     Active Substance: ALTEPLASE
     Route: 042
     Dates: start: 20250823, end: 20250823

REACTIONS (6)
  - Cerebral haemorrhage [Unknown]
  - Blood pressure increased [Recovered/Resolved]
  - Gingival bleeding [Unknown]
  - Tongue oedema [Unknown]
  - Dyspnoea [Unknown]
  - Coma [Unknown]

NARRATIVE: CASE EVENT DATE: 20250823
